FAERS Safety Report 9811309 (Version 2)
Quarter: 2015Q3

REPORT INFORMATION
  Report Type: Spontaneous
  Country: US (occurrence: US)
  Receive Date: 20140110
  Receipt Date: 20150717
  Transmission Date: 20151125
  Serious: Yes (Other)
  Sender: FDA-Public Use
  Company Number: US-SANOFI-AVENTIS-2013SA048612

PATIENT

DRUGS (4)
  1. PLAVIX [Suspect]
     Active Substance: CLOPIDOGREL BISULFATE
     Indication: TRANSIENT ISCHAEMIC ATTACK
     Route: 048
  2. PLAVIX [Suspect]
     Active Substance: CLOPIDOGREL BISULFATE
     Indication: CEREBROVASCULAR ACCIDENT
     Route: 048
  3. PLAVIX [Suspect]
     Active Substance: CLOPIDOGREL BISULFATE
     Indication: ACUTE CORONARY SYNDROME
     Route: 048
  4. PLAVIX [Suspect]
     Active Substance: CLOPIDOGREL BISULFATE
     Indication: MYOCARDIAL INFARCTION
     Route: 048

REACTIONS (5)
  - Cerebrovascular accident [Unknown]
  - Ulcer haemorrhage [Unknown]
  - Hip fracture [Unknown]
  - Visual acuity reduced [Unknown]
  - Myocardial infarction [Unknown]

NARRATIVE: CASE EVENT DATE: 2003
